FAERS Safety Report 7562357-2 (Version None)
Quarter: 2011Q2

REPORT INFORMATION
  Report Type: 
  Country: None (occurrence: None)
  Receive Date: 20110620
  Receipt Date: 20110620
  Transmission Date: 20111010
  Serious: Yes (Hospitalization)
  Sender: FDA-Public Use
  Company Number: None

PATIENT
  Age: 42 Year
  Sex: Male
  Weight: 78.3 kg

DRUGS (2)
  1. MELOXICAM [Suspect]
     Indication: PAIN
     Dosage: 15MG PRN PO
     Route: 048
     Dates: start: 20110503, end: 20110504
  2. ASPIRIN [Suspect]
     Dosage: 81 MG EVERY DAY PO
     Route: 048
     Dates: start: 20110414

REACTIONS (5)
  - ASTHENIA [None]
  - DIZZINESS [None]
  - FALL [None]
  - HEAD INJURY [None]
  - GASTROINTESTINAL HAEMORRHAGE [None]
